FAERS Safety Report 24372427 (Version 1)
Quarter: 2024Q3

REPORT INFORMATION
  Report Type: Spontaneous
  Country: FR (occurrence: FR)
  Receive Date: 20240927
  Receipt Date: 20240927
  Transmission Date: 20241017
  Serious: Yes (Hospitalization, Other)
  Sender: RANBAXY
  Company Number: FR-SUN PHARMACEUTICAL INDUSTRIES LTD-2024RR-470080

PATIENT
  Age: 21 Year
  Sex: Female
  Weight: 55 kg

DRUGS (1)
  1. ACETAMINOPHEN [Suspect]
     Active Substance: ACETAMINOPHEN
     Indication: Intentional overdose
     Dosage: 24 GRAM
     Route: 048
     Dates: start: 20240618, end: 20240618

REACTIONS (3)
  - Poisoning deliberate [Recovered/Resolved]
  - Hepatic cytolysis [Recovering/Resolving]
  - Hepatic failure [Recovered/Resolved]

NARRATIVE: CASE EVENT DATE: 20240618
